FAERS Safety Report 13080983 (Version 2)
Quarter: 2017Q1

REPORT INFORMATION
  Report Type: Report from Study
  Country: None (occurrence: US)
  Receive Date: 20170103
  Receipt Date: 20170216
  Transmission Date: 20170428
  Serious: Yes (Other)
  Sender: FDA-Public Use
  Company Number: US-ABBVIE-16K-163-1822867-00

PATIENT
  Age: 61 Year
  Sex: Female
  Weight: 97.61 kg

DRUGS (5)
  1. METOPROLOL. [Concomitant]
     Active Substance: METOPROLOL
     Indication: HYPERTENSION
  2. TRIAMCINOLONE [Concomitant]
     Active Substance: TRIAMCINOLONE
     Indication: PSORIASIS
  3. DICYCLOMINE [Concomitant]
     Active Substance: DICYCLOMINE HYDROCHLORIDE
     Indication: IRRITABLE BOWEL SYNDROME
  4. HUMIRA [Suspect]
     Active Substance: ADALIMUMAB
     Indication: PSORIASIS
     Route: 058
     Dates: start: 2007, end: 2008
  5. HUMIRA [Suspect]
     Active Substance: ADALIMUMAB
     Route: 058
     Dates: start: 201610, end: 20170202

REACTIONS (12)
  - Pneumonia aspiration [Recovered/Resolved]
  - Lymphadenopathy [Recovering/Resolving]
  - Post procedural complication [Unknown]
  - Oropharyngeal pain [Recovering/Resolving]
  - Lymphadenopathy [Recovered/Resolved]
  - Nodule [Not Recovered/Not Resolved]
  - Pneumonia [Recovering/Resolving]
  - Aspiration [Recovering/Resolving]
  - Respiratory disorder [Unknown]
  - Procedural complication [Recovered/Resolved]
  - Malaise [Recovering/Resolving]
  - Bronchitis [Recovering/Resolving]

NARRATIVE: CASE EVENT DATE: 201608
